FAERS Safety Report 24338906 (Version 1)
Quarter: 2024Q3

REPORT INFORMATION
  Report Type: Spontaneous
  Country: US (occurrence: None)
  Receive Date: 20240918
  Receipt Date: 20240918
  Transmission Date: 20241017
  Serious: Yes (Death)
  Sender: Public
  Company Number: None

PATIENT
  Age: 73 Year
  Sex: Female

DRUGS (3)
  1. TADALAFIL [Suspect]
     Active Substance: TADALAFIL
     Indication: Pulmonary arterial hypertension
     Dosage: FREQUENCY : DAILY;?
     Route: 048
     Dates: start: 202201
  2. TADALAFIL [Suspect]
     Active Substance: TADALAFIL
     Indication: Pulmonary hypertension
  3. HUMIRA [Concomitant]

REACTIONS (1)
  - Cancer surgery [None]

NARRATIVE: CASE EVENT DATE: 20240915
